FAERS Safety Report 17753353 (Version 1)
Quarter: 2020Q2

REPORT INFORMATION
  Report Type: Spontaneous
  Country: US (occurrence: US)
  Receive Date: 20200506
  Receipt Date: 20200506
  Transmission Date: 20200714
  Serious: No
  Sender: FDA-Public Use
  Company Number: US-ROCHE-2554960

PATIENT
  Sex: Female

DRUGS (3)
  1. ESBRIET [Suspect]
     Active Substance: PIRFENIDONE
     Indication: IDIOPATHIC PULMONARY FIBROSIS
     Dosage: RX#1 TAKE I TABLET 3 TIMES DAILY XL WEEK WITH MEALS
     Route: 048
     Dates: start: 202002
  2. ESBRIET [Suspect]
     Active Substance: PIRFENIDONE
     Dosage: TAKE 3 TABLET 3 TIMES DAILY WITH MEAL
     Route: 048
     Dates: start: 202002
  3. ESBRIET [Suspect]
     Active Substance: PIRFENIDONE
     Dosage: TAKE 2 TABLET 3 TIMES DAILY XL WEEK
     Route: 048
     Dates: start: 202002

REACTIONS (2)
  - Fatigue [Unknown]
  - Dyspnoea [Unknown]
